FAERS Safety Report 4961708-2 (Version None)
Quarter: 2006Q1

REPORT INFORMATION
  Report Type: 
  Country: None (occurrence: None)
  Receive Date: 20060329
  Receipt Date: 20060320
  Transmission Date: 20060701
  Serious: Yes (Death)
  Sender: FDA-Public Use
  Company Number: 2006JP000720

PATIENT
  Age: 77 Year
  Sex: Female
  Weight: 38 kg

DRUGS (14)
  1. PROGRAF [Suspect]
     Indication: RHEUMATOID ARTHRITIS
     Dosage: 1 MG, UID/QD, ORAL
     Route: 048
     Dates: start: 20051101
  2. BUFFERIN/JPN/ (ACETYLSALICYLIC ACID, ALUMINIUM GLYCINATE) TABLET [Suspect]
     Indication: CEREBRAL INFARCTION
     Dosage: 81 MG, UID/QD, ORAL
     Route: 048
     Dates: start: 20060228
  3. HEPARIN CALCIUM [Suspect]
     Indication: CEREBRAL INFARCTION
     Dosage: 8 KIU, BID, SUBCUTANEOUS
     Route: 058
     Dates: start: 20060303
  4. PREDNISOLONE [Concomitant]
  5. OSTELUC (ETODOLAC) [Concomitant]
  6. CYTOTEC [Concomitant]
  7. MUCOSTA (REBAMIPIDE) [Concomitant]
  8. PYDOXAL (PYRIDOXAL PHOSPHATE) [Concomitant]
  9. HOKUNALIN (TULOBUTEROL HYDROCHLORIDE) [Concomitant]
  10. ONE-ALPHA (ALFACALCIDOL) [Concomitant]
  11. BLOPRESS (CANDESARTAN CILEXETIL) [Concomitant]
  12. LANSOPRAZOLE [Concomitant]
  13. LENDORM [Concomitant]
  14. SEREVENT [Concomitant]

REACTIONS (4)
  - CEREBRAL INFARCTION [None]
  - HAEMOPTYSIS [None]
  - PULMONARY INFARCTION [None]
  - RESPIRATORY ARREST [None]
